FAERS Safety Report 19770525 (Version 1)
Quarter: 2021Q3

REPORT INFORMATION
  Report Type: Spontaneous
  Country: US (occurrence: US)
  Receive Date: 20210831
  Receipt Date: 20210831
  Transmission Date: 20211014
  Serious: No
  Sender: FDA-Public Use
  Company Number: None

PATIENT
  Age: 76 Year
  Sex: Female
  Weight: 105.75 kg

DRUGS (22)
  1. DULERA 100?5 MCG/ACT [Concomitant]
  2. HYDROCODONE?ACETAMINOPHEN 10?325MG [Concomitant]
     Active Substance: ACETAMINOPHEN\HYDROCODONE
  3. VITAMIN D 2000IU [Concomitant]
  4. BIOTIN MAXIMUM 10000MCG [Concomitant]
  5. PREGABALIN 100MG [Concomitant]
     Active Substance: PREGABALIN
  6. DIPHENHYDRAMINE 25MG [Concomitant]
     Active Substance: DIPHENHYDRAMINE
  7. CROMOLYN SODIUM 4% [Concomitant]
  8. PROLIA [Concomitant]
     Active Substance: DENOSUMAB
  9. RHINOCORT ALLERGY 32MCG/ACT [Concomitant]
  10. MONTELUKAST [Concomitant]
     Active Substance: MONTELUKAST SODIUM
  11. VERZENIO [Suspect]
     Active Substance: ABEMACICLIB
     Indication: BREAST CANCER
     Route: 048
     Dates: start: 20200107, end: 20210831
  12. BUMETANIDE 1MG [Concomitant]
     Active Substance: BUMETANIDE
  13. MUCINEX DM 60?1200MG [Concomitant]
  14. FLUTICASONE 50MCG/ACT [Concomitant]
  15. ATORVASTATIN 10MG [Concomitant]
     Active Substance: ATORVASTATIN
  16. CYMBALTA [Concomitant]
     Active Substance: DULOXETINE HYDROCHLORIDE
  17. GLUCOSAMINE 1500MG [Concomitant]
  18. SYNTHROID [Concomitant]
     Active Substance: LEVOTHYROXINE SODIUM
  19. ACETAMINOPHEN 500MG [Concomitant]
     Active Substance: ACETAMINOPHEN
  20. CETIRIZINE [Concomitant]
     Active Substance: CETIRIZINE HYDROCHLORIDE
  21. METHOCARBAMOL 500MG [Concomitant]
  22. RITUXAN [Concomitant]
     Active Substance: RITUXIMAB

REACTIONS (7)
  - Diarrhoea [None]
  - Cough [None]
  - Tumour marker increased [None]
  - Abdominal pain [None]
  - Dyspnoea [None]
  - Tremor [None]
  - Fatigue [None]

NARRATIVE: CASE EVENT DATE: 20210831
